FAERS Safety Report 10867548 (Version 1)
Quarter: 2015Q1

REPORT INFORMATION
  Report Type: Spontaneous
  Country: US (occurrence: US)
  Receive Date: 20150225
  Receipt Date: 20150225
  Transmission Date: 20150721
  Serious: No
  Sender: FDA-Public Use
  Company Number: US-ASTRAZENECA-2015SE15440

PATIENT

DRUGS (1)
  1. SYMBICORT [Suspect]
     Active Substance: BUDESONIDE\FORMOTEROL FUMARATE DIHYDRATE
     Dosage: DOSE:UNKNOWN, FREQUENCY: UNKNOWN
     Route: 055
     Dates: end: 2015

REACTIONS (2)
  - Skin exfoliation [Recovered/Resolved]
  - Coating in mouth [Recovered/Resolved]
